FAERS Safety Report 14603230 (Version 1)
Quarter: 2018Q1

REPORT INFORMATION
  Report Type: Report from Study
  Country: FR (occurrence: FR)
  Receive Date: 20180306
  Receipt Date: 20180306
  Transmission Date: 20180509
  Serious: Yes (Life-Threatening, Hospitalization, Other)
  Sender: FDA-Public Use
  Company Number: FR-ROCHE-2054393

PATIENT
  Age: 68 Year
  Sex: Male
  Weight: 64 kg

DRUGS (7)
  1. OBINUTUZUMAB. [Suspect]
     Active Substance: OBINUTUZUMAB
     Indication: CHRONIC LYMPHOCYTIC LEUKAEMIA
     Dosage: OBINUTUZUMAB 1000 MG IV INFUSION ON DAYS 1/2 (DOSE SPLIT OVER 2 CONSECUTIVE DAYS), 8 AND 15 OF CYCLE
     Route: 042
     Dates: start: 20151221, end: 20151221
  2. ALPRAZOLAM. [Concomitant]
     Active Substance: ALPRAZOLAM
     Route: 048
     Dates: start: 20151123
  3. KARDEGIC [Concomitant]
     Active Substance: ASPIRIN DL-LYSINE
     Route: 048
     Dates: start: 20120118
  4. OBINUTUZUMAB. [Suspect]
     Active Substance: OBINUTUZUMAB
     Route: 042
     Dates: start: 20151228, end: 20151228
  5. OBINUTUZUMAB. [Suspect]
     Active Substance: OBINUTUZUMAB
     Dosage: FURTHER DOSES OF 1000MG ON DAY 1 OF EACH 28 DAY CYCLE
     Route: 042
     Dates: start: 20160104, end: 20160104
  6. OBINUTUZUMAB. [Suspect]
     Active Substance: OBINUTUZUMAB
     Route: 042
     Dates: start: 20151222, end: 20151222
  7. BENDAMUSTINE [Suspect]
     Active Substance: BENDAMUSTINE
     Indication: CHRONIC LYMPHOCYTIC LEUKAEMIA
     Dosage: FURTHER 90MG/M2 ON DAY C1D2 (22/DEC/2015), ?HE RECEIVED FIRTHER 90MG/M2 DOSES ON DAY 1 AND DAY 2 OF
     Route: 042
     Dates: start: 20151221

REACTIONS (3)
  - Hypoxia [Not Recovered/Not Resolved]
  - Lung disorder [Not Recovered/Not Resolved]
  - Pulmonary embolism [Not Recovered/Not Resolved]

NARRATIVE: CASE EVENT DATE: 20180106
